FAERS Safety Report 6657539-8 (Version None)
Quarter: 2010Q1

REPORT INFORMATION
  Report Type: 
  Country: None (occurrence: None)
  Receive Date: 20100330
  Receipt Date: 20100323
  Transmission Date: 20100710
  Serious: Yes (Disabling)
  Sender: FDA-Public Use
  Company Number: US-MYLANLABS-2010S1004956

PATIENT
  Sex: Male

DRUGS (5)
  1. IPRATROPIUM BROMIDE AND ALBUTEROL SULFATE INHALATION SOLUTION [Suspect]
     Indication: BRONCHIECTASIS
     Route: 055
     Dates: start: 20070101
  2. IPRATROPIUM BROMIDE AND ALBUTEROL SULFATE INHALATION SOLUTION [Suspect]
     Route: 055
     Dates: start: 20070101
  3. CENTRUM SILVER [Concomitant]
  4. CALCIUM [Concomitant]
  5. Q10 [Concomitant]

REACTIONS (5)
  - BLINDNESS [None]
  - CATARACT [None]
  - EYE DISCHARGE [None]
  - EYE IRRITATION [None]
  - VISUAL ACUITY REDUCED [None]
